FAERS Safety Report 9375171 (Version 1)
Quarter: 2013Q2

REPORT INFORMATION
  Report Type: Spontaneous
  Country: GB (occurrence: GB)
  Receive Date: 20130628
  Receipt Date: 20130628
  Transmission Date: 20140414
  Serious: Yes (Other)
  Sender: FDA-Public Use
  Company Number: GB-PFIZER INC-2013188418

PATIENT
  Age: 52 Year
  Sex: Female

DRUGS (1)
  1. ZYVOX [Suspect]

REACTIONS (8)
  - Systemic lupus erythematosus [Unknown]
  - Headache [Unknown]
  - Ear pain [Unknown]
  - Periorbital contusion [Unknown]
  - Decreased appetite [Unknown]
  - Lethargy [Unknown]
  - Nausea [Unknown]
  - Pain [Unknown]
